FAERS Safety Report 11843044 (Version 1)
Quarter: 2015Q4

REPORT INFORMATION
  Report Type: Spontaneous
  Country: CN (occurrence: CN)
  Receive Date: 20151216
  Receipt Date: 20151216
  Transmission Date: 20160305
  Serious: Yes (Other)
  Sender: FDA-Public Use
  Company Number: CN-BAXTER-2015BAX066941

PATIENT
  Age: 60 Year
  Sex: Female
  Weight: 50 kg

DRUGS (6)
  1. DOCETAXEL. [Suspect]
     Active Substance: DOCETAXEL
     Indication: BREAST CANCER
     Dosage: 40 GTT/MIN
     Route: 041
     Dates: start: 20150506, end: 20150506
  2. 0.9% SODIUM CHLORIDE INJECTION [Suspect]
     Active Substance: SODIUM CHLORIDE
     Indication: MEDICATION DILUTION
     Dosage: 40 GTT/MIN
     Route: 041
     Dates: start: 20150506, end: 20150506
  3. EPIRUBICIN HYDROCHLORIDE. [Suspect]
     Active Substance: EPIRUBICIN HYDROCHLORIDE
     Indication: BREAST CANCER
     Dosage: 40 GTT/MIN
     Route: 041
     Dates: start: 20150506, end: 20150506
  4. 5% GLUCOSE  INJECTION [Suspect]
     Active Substance: DEXTROSE
     Indication: MEDICATION DILUTION
     Dosage: 40 GTT/MIN
     Route: 041
     Dates: start: 20150506, end: 20150506
  5. ENDOXAN [Suspect]
     Active Substance: CYCLOPHOSPHAMIDE
     Indication: BREAST CANCER
     Dosage: 40 GTT/MIN
     Route: 041
     Dates: start: 20150506, end: 20150506
  6. 5% GLUCOSE  INJECTION [Suspect]
     Active Substance: DEXTROSE
     Route: 065
     Dates: start: 20150506, end: 20150506

REACTIONS (1)
  - Granulocytopenia [Recovering/Resolving]

NARRATIVE: CASE EVENT DATE: 20150512
